FAERS Safety Report 13873466 (Version 2)
Quarter: 2020Q2

REPORT INFORMATION
  Report Type: Spontaneous
  Country: US (occurrence: US)
  Receive Date: 20170816
  Receipt Date: 20200526
  Transmission Date: 20200713
  Serious: Yes (Death, Hospitalization, Disabling, Other)
  Sender: FDA-Public Use
  Company Number: US-009507513-1708USA006794

PATIENT
  Sex: Female
  Weight: 51.7 kg

DRUGS (3)
  1. VICTOZA [Interacting]
     Active Substance: LIRAGLUTIDE
     Indication: PRODUCT USED FOR UNKNOWN INDICATION
     Dosage: 18MG/3ML DAILY, STRENGTH: 18MG/3ML
     Route: 065
     Dates: start: 201403, end: 20140613
  2. FLUOROURACIL (+) IRINOTECAN HYDROCHLORIDE (+) LEUCOVORIN CALCIUM (+) O [Suspect]
     Active Substance: FLUOROURACIL\IRINOTECAN\LEUCOVORIN\OXALIPLATIN
     Dosage: UNK
     Dates: start: 2015
  3. JANUVIA [Suspect]
     Active Substance: SITAGLIPTIN PHOSPHATE
     Indication: PRODUCT USED FOR UNKNOWN INDICATION
     Dosage: 100 MILLIGRAM DAILY
     Route: 048
     Dates: start: 20140206, end: 201405

REACTIONS (19)
  - Pancreatitis [Recovered/Resolved]
  - Hypertriglyceridaemia [Unknown]
  - Death [Fatal]
  - Barrett^s oesophagus [Unknown]
  - Hypersensitivity [Unknown]
  - Constipation [Unknown]
  - Haematuria [Unknown]
  - Vomiting [Unknown]
  - Adverse event [Unknown]
  - Nausea [Unknown]
  - Fatigue [Unknown]
  - Weight decreased [Unknown]
  - Tachycardia [Unknown]
  - Hypomagnesaemia [Unknown]
  - Pancreatic carcinoma [Not Recovered/Not Resolved]
  - Metastases to liver [Unknown]
  - Hypokalaemia [Unknown]
  - Metastases to adrenals [Unknown]
  - Hepatic lesion [Unknown]

NARRATIVE: CASE EVENT DATE: 2014
